FAERS Safety Report 7335426-X (Version None)
Quarter: 2011Q1

REPORT INFORMATION
  Report Type: 
  Country: None (occurrence: None)
  Receive Date: 20110307
  Receipt Date: 20110228
  Transmission Date: 20110831
  Serious: Yes (Life-Threatening, Hospitalization, Disabling)
  Sender: FDA-Public Use
  Company Number: JP-BAYER-200915066BYL

PATIENT
  Sex: Male
  Weight: 71.2 kg

DRUGS (4)
  1. NEXAVAR [Suspect]
     Dosage: DAILY DOSE 600 MG
     Dates: start: 20100119, end: 20100329
  2. NEXAVAR [Suspect]
     Dosage: UNK
     Route: 048
     Dates: start: 20100330
  3. GLIMICRON [Concomitant]
     Dosage: SICE BEFORE NEXAVER ADMINISTRATION
     Route: 048
  4. NEXAVAR [Suspect]
     Indication: HEPATIC NEOPLASM MALIGNANT
     Dosage: 400 MG, BID
     Route: 048
     Dates: start: 20090630, end: 20091214

REACTIONS (6)
  - HYPERTENSION [None]
  - DIARRHOEA [None]
  - METASTASES TO HEART [None]
  - STOMATITIS [None]
  - CEREBRAL INFARCTION [None]
  - PALMAR-PLANTAR ERYTHRODYSAESTHESIA SYNDROME [None]
